FAERS Safety Report 7892432-4 (Version None)
Quarter: 2011Q4

REPORT INFORMATION
  Report Type: 
  Country: None (occurrence: None)
  Receive Date: 20111102
  Receipt Date: 20111020
  Transmission Date: 20120403
  Serious: Yes (Other)
  Sender: FDA-Public Use
  Company Number: CIP11001633

PATIENT
  Age: 64 Year
  Sex: Female

DRUGS (21)
  1. ALENDRONATE SODIUM [Suspect]
     Dosage: 70 MG ONCE WEEKLY, ORAL
     Route: 048
     Dates: start: 20081208, end: 20100512
  2. METHOCARBAMOL [Concomitant]
  3. IBUPROFEN GENERICON PHARMA (IBUPROFEN) [Concomitant]
  4. ASPIRIN [Concomitant]
  5. ALBUTEROL [Concomitant]
  6. CODEINE PHOSPHATE AND ACETAMINOPHEN [Concomitant]
  7. HYDROCODONE W/APAP (HYDROCODONE, PARACETAMOL) [Concomitant]
  8. ACTONEL [Suspect]
     Indication: OSTEOPENIA
     Dosage: 5 MG, DAILY, ORAL
     Route: 048
     Dates: start: 20010130
  9. OXYCODONE AND ACETAMINOPHEN [Concomitant]
  10. OXYCODONE AND ACETAMINOPHEN (OXYCODONE HYDROCHLORIDE, PARACETAMOL) [Concomitant]
  11. NAPROXEN /00256202/ (NAPROXEN SODIUM) [Concomitant]
  12. SKELAXIN /00611501/ (METAXALONE) [Concomitant]
  13. CALCIUM CARBONATE [Concomitant]
  14. MECLIZINE /00072801/ (MECLOZINE) [Concomitant]
  15. CHLORHEXIDINE GLUCONATE [Concomitant]
  16. CARISOPRODOL [Concomitant]
  17. MULTIVITAMIN /01229101/ (VITAMINS NOS) [Concomitant]
  18. ACTONEL [Suspect]
     Indication: OSTEOPENIA
     Dosage: 35 MG ONCE WEEKLY, ORAL
     Route: 048
     Dates: start: 20030403, end: 20081208
  19. CYCLOBENZAPRIN HYDROCHLORIDE (CYCLOBENZAPRINE HYDROCHLORIDE) [Concomitant]
  20. ALPRAZOLAM [Concomitant]
  21. AMOXICILLIN [Concomitant]

REACTIONS (8)
  - ORAL PAIN [None]
  - TOOTHACHE [None]
  - BONE LOSS [None]
  - PERIODONTAL DISEASE [None]
  - MEDICAL DEVICE COMPLICATION [None]
  - TOOTH DISORDER [None]
  - TOOTH LOSS [None]
  - PERIODONTAL INFECTION [None]
